FAERS Safety Report 9175412 (Version 4)
Quarter: 2013Q3

REPORT INFORMATION
  Report Type: Spontaneous
  Country: US (occurrence: US)
  Receive Date: 20130320
  Receipt Date: 20130916
  Transmission Date: 20140515
  Serious: No
  Sender: FDA-Public Use
  Company Number: US-PFIZER INC-2013088029

PATIENT
  Age: 73 Year
  Sex: Female

DRUGS (3)
  1. ZITHROMAX [Suspect]
     Dosage: (TWO (DOSAGE FORM) DAY ONE (DOSAGE FORM) QD X 4 DAYS)
     Route: 048
     Dates: start: 20090206, end: 20090211
  2. LISINOPRIL [Suspect]
     Indication: BLOOD PRESSURE ABNORMAL
     Dosage: 12.5/10 MG
     Dates: start: 20081212, end: 20090316
  3. LISINOPRIL [Suspect]
     Indication: HYPERTENSION

REACTIONS (5)
  - Heart rate irregular [Unknown]
  - Extrasystoles [Unknown]
  - Influenza like illness [Unknown]
  - Cough [Unknown]
  - Palpitations [Not Recovered/Not Resolved]
